FAERS Safety Report 9669604 (Version 1)
Quarter: 2013Q4

REPORT INFORMATION
  Report Type: Spontaneous
  Country: GB (occurrence: GB)
  Receive Date: 20131105
  Receipt Date: 20131105
  Transmission Date: 20140711
  Serious: Yes (Other)
  Sender: FDA-Public Use
  Company Number: PHHY2013GB123507

PATIENT
  Age: 87 Year
  Sex: Male

DRUGS (5)
  1. DICLOFENAC [Suspect]
     Indication: OSTEOARTHRITIS
     Dosage: 50 MG, TID
     Route: 048
     Dates: start: 1985
  2. DICLOFENAC [Suspect]
     Dosage: 50 MG, TID
     Route: 048
     Dates: start: 1985, end: 201305
  3. ARCOXIA [Suspect]
     Dosage: MG, UNK
     Route: 048
     Dates: start: 201307
  4. ARCOXIA [Suspect]
     Dosage: 30 MG, BID
     Route: 048
  5. ARCOXIA [Suspect]
     Dosage: 30 MG MANE
     Route: 048
     Dates: start: 201307

REACTIONS (4)
  - Renal failure chronic [Not Recovered/Not Resolved]
  - Cardiac failure [Recovered/Resolved]
  - Gastric ulcer [Unknown]
  - Dyspnoea [Unknown]
